FAERS Safety Report 25268211 (Version 1)
Quarter: 2025Q2

REPORT INFORMATION
  Report Type: Spontaneous
  Country: US (occurrence: None)
  Receive Date: 20250502
  Receipt Date: 20250502
  Transmission Date: 20250717
  Serious: Yes (Death)
  Sender: FDA-CTU
  Company Number: None

PATIENT
  Age: 87 Year
  Sex: Male

DRUGS (12)
  1. PIRFENIDONE [Suspect]
     Active Substance: PIRFENIDONE
     Indication: Interstitial lung disease
     Dosage: 801MG BID ORAL
     Route: 048
     Dates: start: 20210317, end: 20250414
  2. ATORVASTATIN [Concomitant]
     Active Substance: ATORVASTATIN
  3. FOSAMAX [Concomitant]
     Active Substance: ALENDRONATE SODIUM
  4. PREDNISONE [Concomitant]
     Active Substance: PREDNISONE
  5. ALBUTEROL [Concomitant]
     Active Substance: ALBUTEROL
  6. ALBUTEROL SULFATE [Concomitant]
     Active Substance: ALBUTEROL SULFATE
  7. FLOMAX [Concomitant]
     Active Substance: TAMSULOSIN HYDROCHLORIDE
  8. TOLNAFTATE [Concomitant]
     Active Substance: TOLNAFTATE
  9. SPIRIVA RESPIMAT [Concomitant]
     Active Substance: TIOTROPIUM BROMIDE
  10. BISOPROLOL [Concomitant]
     Active Substance: BISOPROLOL
  11. VITAMINS [Concomitant]
     Active Substance: VITAMINS
  12. VITAMIN D3 [Concomitant]
     Active Substance: CHOLECALCIFEROL

REACTIONS (6)
  - Hyponatraemia [None]
  - Hypervolaemia [None]
  - Hepatic cirrhosis [None]
  - Pleural effusion [None]
  - Ascites [None]
  - Acute respiratory failure [None]

NARRATIVE: CASE EVENT DATE: 20250412
